FAERS Safety Report 24910499 (Version 2)
Quarter: 2025Q1

REPORT INFORMATION
  Report Type: Report from Study
  Country: US (occurrence: US)
  Receive Date: 20250131
  Receipt Date: 20250221
  Transmission Date: 20250409
  Serious: Yes (Hospitalization, Other)
  Sender: GALDERMA
  Company Number: US-GALDERMA-US2025000864

PATIENT

DRUGS (1)
  1. NEMOLIZUMAB-ILTO [Suspect]
     Active Substance: NEMOLIZUMAB-ILTO
     Indication: Product used for unknown indication
     Route: 058
     Dates: start: 202412, end: 202412

REACTIONS (7)
  - Rib fracture [Unknown]
  - Pneumonia [Unknown]
  - Pulmonary oedema [Unknown]
  - Fall [Unknown]
  - Head injury [Unknown]
  - Influenza [Unknown]
  - Product dose omission issue [Recovered/Resolved]

NARRATIVE: CASE EVENT DATE: 20241201
